FAERS Safety Report 5924073-X (Version None)
Quarter: 2008Q4

REPORT INFORMATION
  Report Type: 
  Country: None (occurrence: None)
  Receive Date: 20081015
  Receipt Date: 20080724
  Transmission Date: 20090506
  Serious: Yes (Death, Hospitalization)
  Sender: FDA-Public Use
  Company Number: 2005BI011324

PATIENT
  Age: 45 Year
  Sex: Female
  Weight: 45 kg

DRUGS (7)
  1. ZEVALIN [Suspect]
     Indication: NON-HODGKIN'S LYMPHOMA
     Dosage: 3.5 MCI; 1X; IV
     Route: 042
     Dates: start: 20050404, end: 20050412
  2. RITUXAN [Concomitant]
  3. ISODINE [Concomitant]
  4. HACHIAZULE [Concomitant]
  5. SOLDEM [Concomitant]
  6. FLUDARABINE PHOSPHATE [Concomitant]
  7. .. [Concomitant]

REACTIONS (5)
  - ACUTE MYELOID LEUKAEMIA [None]
  - RENAL FAILURE ACUTE [None]
  - SEPSIS [None]
  - STEM CELL TRANSPLANT [None]
  - VENOOCCLUSIVE DISEASE [None]
